FAERS Safety Report 10021897 (Version 1)
Quarter: 2014Q1

REPORT INFORMATION
  Report Type: Spontaneous
  Country: US (occurrence: US)
  Receive Date: 20140319
  Receipt Date: 20140319
  Transmission Date: 20141002
  Serious: Yes (Other)
  Sender: FDA-Public Use
  Company Number: US-GLAXOSMITHKLINE-A0968605A

PATIENT
  Age: 34 Year
  Sex: Female
  Weight: 104.42 kg

DRUGS (14)
  1. BENLYSTA [Suspect]
     Indication: SYSTEMIC LUPUS ERYTHEMATOSUS
     Route: 042
     Dates: start: 20120124
  2. PLAQUENIL [Concomitant]
     Dosage: 200MG PER DAY
  3. CELLCEPT [Concomitant]
  4. VALTREX [Concomitant]
  5. NAPROXEN [Concomitant]
  6. PROCARDIA XL [Concomitant]
  7. DILTIAZEM [Concomitant]
  8. TOPAMAX [Concomitant]
  9. MICROZIDE [Concomitant]
  10. TESSALON [Concomitant]
  11. COUGH SYRUP [Concomitant]
  12. FOLIC ACID [Concomitant]
  13. VYVANSE [Concomitant]
  14. PROTONIX [Concomitant]

REACTIONS (11)
  - Pulmonary fibrosis [Not Recovered/Not Resolved]
  - Middle insomnia [Not Recovered/Not Resolved]
  - Fatigue [Recovered/Resolved]
  - Feeling abnormal [Not Recovered/Not Resolved]
  - Nasal congestion [Not Recovered/Not Resolved]
  - Cough [Not Recovered/Not Resolved]
  - Dyspnoea [Not Recovered/Not Resolved]
  - Dysphonia [Not Recovered/Not Resolved]
  - Sinus congestion [Not Recovered/Not Resolved]
  - Weight decreased [Not Recovered/Not Resolved]
  - Fluid retention [Not Recovered/Not Resolved]
